FAERS Safety Report 10957492 (Version 2)
Quarter: 2015Q1

REPORT INFORMATION
  Report Type: Report from Study
  Country: JP (occurrence: JP)
  Receive Date: 20150326
  Receipt Date: 20150331
  Transmission Date: 20150721
  Serious: Yes (Other)
  Sender: FDA-Public Use
  Company Number: JP-JNJFOC-20150318566

PATIENT
  Age: 63 Year
  Sex: Female
  Weight: 67 kg

DRUGS (22)
  1. USTEKINUMAB [Suspect]
     Active Substance: USTEKINUMAB
     Indication: PSORIASIS
     Route: 058
     Dates: end: 20150310
  2. OXAROL [Concomitant]
     Active Substance: MAXACALCITOL
     Indication: PSORIASIS
     Route: 065
     Dates: start: 20130219
  3. USTEKINUMAB [Suspect]
     Active Substance: USTEKINUMAB
     Indication: PSORIASIS
     Route: 058
     Dates: start: 20130806, end: 20130806
  4. CINAL [Concomitant]
     Active Substance: ASCORBIC ACID\CALCIUM PANTOTHENATE
     Indication: PIGMENTATION DISORDER
     Route: 048
     Dates: start: 20121030
  5. FUROZIN [Concomitant]
     Route: 061
     Dates: start: 20121030
  6. NERISONA [Concomitant]
     Active Substance: DIFLUCORTOLONE VALERATE
     Indication: PSORIASIS
     Route: 061
  7. PROTOPIC [Concomitant]
     Active Substance: TACROLIMUS
     Indication: PSORIASIS
     Route: 061
     Dates: end: 20130805
  8. USTEKINUMAB [Suspect]
     Active Substance: USTEKINUMAB
     Indication: PSORIASIS
     Route: 058
     Dates: start: 20131030, end: 20131030
  9. USTEKINUMAB [Suspect]
     Active Substance: USTEKINUMAB
     Indication: PSORIASIS
     Route: 058
     Dates: start: 20121127, end: 20121127
  10. CINAL [Concomitant]
     Active Substance: ASCORBIC ACID\CALCIUM PANTOTHENATE
     Indication: PSORIASIS
     Route: 048
     Dates: start: 20121030
  11. RULID [Concomitant]
     Active Substance: ROXITHROMYCIN
     Indication: PSORIASIS
     Route: 048
     Dates: start: 20130402, end: 20130415
  12. SATOSALBE [Concomitant]
     Active Substance: ZINC OXIDE
     Indication: PSORIASIS
     Route: 061
     Dates: start: 20130806
  13. TALION [Concomitant]
     Active Substance: BEPOTASTINE
     Indication: PSORIASIS
     Route: 048
     Dates: start: 20121016
  14. ANTEBATE [Concomitant]
     Active Substance: BETAMETHASONE DIPROPIONATE
     Indication: PSORIASIS
     Route: 061
     Dates: start: 20130402, end: 20130805
  15. LOCHOL [Concomitant]
     Active Substance: FLUVASTATIN SODIUM
     Indication: HYPERLIPIDAEMIA
     Route: 048
     Dates: start: 20140121
  16. USTEKINUMAB [Suspect]
     Active Substance: USTEKINUMAB
     Indication: PSORIASIS
     Route: 058
     Dates: start: 20121030, end: 20121030
  17. USTEKINUMAB [Suspect]
     Active Substance: USTEKINUMAB
     Indication: PSORIASIS
     Route: 058
     Dates: start: 20130514, end: 20130514
  18. ANTEBATE [Concomitant]
     Active Substance: BETAMETHASONE DIPROPIONATE
     Indication: PSORIASIS
     Route: 061
  19. USTEKINUMAB [Suspect]
     Active Substance: USTEKINUMAB
     Indication: PSORIASIS
     Route: 058
     Dates: start: 20130219, end: 20130219
  20. TOPSYM [Concomitant]
     Indication: PSORIASIS
     Route: 061
     Dates: start: 20121030, end: 20130805
  21. RINDERON VG [Concomitant]
     Active Substance: BETAMETHASONE VALERATE\GENTAMICIN SULFATE
     Indication: PSORIASIS
     Route: 061
     Dates: start: 20130402, end: 20130415
  22. NEO-MEDROL [Concomitant]
     Active Substance: METHYLPREDNISOLONE\NEOMYCIN SULFATE
     Indication: PSORIASIS
     Route: 061
     Dates: start: 20131029

REACTIONS (4)
  - Enterocolitis [Unknown]
  - Pneumonia [Unknown]
  - Nasopharyngitis [Unknown]
  - Upper respiratory tract inflammation [Unknown]

NARRATIVE: CASE EVENT DATE: 201502
